FAERS Safety Report 6272717-8 (Version None)
Quarter: 2009Q3

REPORT INFORMATION
  Report Type: 
  Country: None (occurrence: None)
  Receive Date: 20090716
  Receipt Date: 20090716
  Transmission Date: 20100115
  Serious: No
  Sender: FDA-Public Use
  Company Number: None

PATIENT
  Sex: Female

DRUGS (1)
  1. BENICAR [Suspect]
     Indication: HYPERTENSION
     Dosage: DAILY ORAL
     Route: 048

REACTIONS (3)
  - CONDUCTION DISORDER [None]
  - NERVE INJURY [None]
  - SENSORY DISTURBANCE [None]
